FAERS Safety Report 5688606-3 (Version None)
Quarter: 2008Q1

REPORT INFORMATION
  Report Type: 
  Country: None (occurrence: None)
  Receive Date: 20080331
  Receipt Date: 20080228
  Transmission Date: 20080703
  Serious: No
  Sender: FDA-Public Use
  Company Number: US-BAYER-200815719NA

PATIENT
  Age: 36 Year
  Sex: Female
  Weight: 43 kg

DRUGS (2)
  1. YAZ [Suspect]
     Indication: CONTRACEPTION
     Route: 048
     Dates: start: 20080202
  2. YASMIN [Concomitant]
     Route: 048

REACTIONS (2)
  - METRORRHAGIA [None]
  - OLIGOMENORRHOEA [None]
